FAERS Safety Report 10541132 (Version 1)
Quarter: 2014Q4

REPORT INFORMATION
  Report Type: Spontaneous
  Country: US (occurrence: None)
  Receive Date: 20141023
  Receipt Date: 20141023
  Transmission Date: 20150529
  Serious: Yes (Hospitalization, Disabling, Other)
  Sender: FDA-Public Use
  Company Number: None

PATIENT
  Age: 73 Year
  Sex: Male
  Weight: 91.17 kg

DRUGS (11)
  1. LANTUS [Concomitant]
     Active Substance: INSULIN GLARGINE
  2. LORAZEPAM. [Concomitant]
     Active Substance: LORAZEPAM
  3. CIPROFLOXACIN HYDROCHLORIDE. [Suspect]
     Active Substance: CIPROFLOXACIN HYDROCHLORIDE
     Indication: URINARY TRACT INFECTION
     Route: 048
     Dates: start: 20140912, end: 20140914
  4. LISINOPRIL. [Concomitant]
     Active Substance: LISINOPRIL
  5. HYDROCODONE [Concomitant]
     Active Substance: HYDROCODONE
  6. ALORVASTATIN [Concomitant]
  7. CLOBETASOL [Concomitant]
     Active Substance: CLOBETASOL
  8. TORSEMIDE. [Concomitant]
     Active Substance: TORSEMIDE
  9. LYRICA [Concomitant]
     Active Substance: PREGABALIN
  10. TRAMADOL [Concomitant]
     Active Substance: TRAMADOL
  11. LEVOTHYROXINO [Concomitant]

REACTIONS (3)
  - Delusion [None]
  - Hallucination [None]
  - Memory impairment [None]

NARRATIVE: CASE EVENT DATE: 20140914
